FAERS Safety Report 7768290-5 (Version None)
Quarter: 2011Q3

REPORT INFORMATION
  Report Type: 
  Country: None (occurrence: None)
  Receive Date: 20110922
  Receipt Date: 20110216
  Transmission Date: 20111222
  Serious: No
  Sender: FDA-Public Use
  Company Number: US-ASTRAZENECA-2011SE02625

PATIENT
  Age: 26473 Day
  Sex: Female

DRUGS (2)
  1. SEROQUEL XR [Suspect]
     Indication: BIPOLAR I DISORDER
     Route: 048
     Dates: start: 20101105, end: 20101217
  2. KLONOPIN [Concomitant]

REACTIONS (4)
  - MANIA [None]
  - ANGER [None]
  - IRRITABILITY [None]
  - LOGORRHOEA [None]
